FAERS Safety Report 8010934-7 (Version None)
Quarter: 2011Q4

REPORT INFORMATION
  Report Type: 
  Country: None (occurrence: None)
  Receive Date: 20111228
  Receipt Date: 20111219
  Transmission Date: 20120403
  Serious: Yes (Hospitalization)
  Sender: FDA-Public Use
  Company Number: US-BAYER-2011-036960

PATIENT
  Age: 39 Year
  Sex: Female
  Weight: 123.81 kg

DRUGS (11)
  1. AMOX-CLAV (AUGMENTIN) [Concomitant]
     Dosage: UNK
     Dates: start: 20070501
  2. WYGESIC [Concomitant]
     Indication: BACK PAIN
  3. LEVAQUIN [Concomitant]
     Indication: NASOPHARYNGITIS
  4. LOTREL [Concomitant]
     Indication: BLOOD PRESSURE MANAGEMENT
     Dosage: UNK
     Dates: start: 20061101, end: 20080801
  5. YAZ [Suspect]
     Indication: CONTRACEPTION
     Dosage: UNK
     Dates: start: 20060801, end: 20070810
  6. DYAZIDE [Concomitant]
     Indication: HYPERTENSION
     Dosage: 37.5 MG, QD
  7. LEVAQUIN [Concomitant]
     Indication: LARYNGITIS
  8. VENTOLIN [Concomitant]
     Indication: ASTHMA
     Dosage: UNK
     Dates: start: 20060601, end: 20110801
  9. CLARINEX [Concomitant]
     Indication: MULTIPLE ALLERGIES
     Dosage: 5 MG, QD
     Dates: start: 20070401
  10. ZOMIG [Concomitant]
     Indication: MIGRAINE
     Dosage: 2.5 MG, UNK
     Dates: start: 20070512
  11. NASONEX [Concomitant]
     Indication: MULTIPLE ALLERGIES

REACTIONS (10)
  - INJURY [None]
  - PAIN IN EXTREMITY [None]
  - THROMBOSIS [None]
  - PAIN [None]
  - ANXIETY [None]
  - PULMONARY EMBOLISM [None]
  - OEDEMA PERIPHERAL [None]
  - DEEP VEIN THROMBOSIS [None]
  - EMOTIONAL DISTRESS [None]
  - DYSPNOEA [None]
